FAERS Safety Report 8137364 (Version 2)
Quarter: 2013Q4

REPORT INFORMATION
  Report Type: Report from Study
  Country: GB (occurrence: GB)
  Receive Date: 20110915
  Receipt Date: 20131210
  Transmission Date: 20140711
  Serious: Yes (Hospitalization)
  Sender: FDA-Public Use
  Company Number: GB-MILLENNIUM PHARMACEUTICALS, INC.-2008-02671

PATIENT
  Sex: 0

DRUGS (9)
  1. VELCADE [Suspect]
     Indication: PLASMA CELL MYELOMA
     Dosage: 2.2 MG, UNK
     Route: 042
     Dates: start: 20080506, end: 20080620
  2. MELPHALAN [Suspect]
     Indication: PLASMA CELL MYELOMA
     Dosage: 25.5 MG, UNK
     Route: 042
     Dates: start: 20080509, end: 20080613
  3. IDARUBICIN [Suspect]
     Indication: PLASMA CELL MYELOMA
     Dosage: 5 MG/M2, UNK
     Route: 048
     Dates: start: 20080509, end: 20080614
  4. CLIMAVAL [Concomitant]
     Indication: HORMONE REPLACEMENT THERAPY
     Dosage: 2 MG, UNK
  5. NAPROXEN [Concomitant]
  6. CODEINE PHOSPHATE [Concomitant]
  7. PARACETAMOL [Concomitant]
  8. ZOMETA [Concomitant]
     Dosage: 4 MG, UNK
  9. DIHYDROCODEINE [Concomitant]

REACTIONS (4)
  - Ear pain [Recovered/Resolved]
  - Oropharyngeal pain [Recovered/Resolved]
  - Pyrexia [Recovered/Resolved]
  - Deafness [Recovered/Resolved]
